FAERS Safety Report 4578187-X (Version None)
Quarter: 2005Q1

REPORT INFORMATION
  Report Type: 
  Country: None (occurrence: None)
  Receive Date: 20050203
  Receipt Date: 20050203
  Transmission Date: 20050727
  Serious: Yes (Other)
  Sender: FDA-Public Use
  Company Number: None

PATIENT
  Age: 55 Year
  Sex: Male
  Weight: 83.9154 kg

DRUGS (2)
  1. LEVAQUIN [Suspect]
     Indication: POST PROCEDURAL COMPLICATION
     Dosage: 500 MG Q 24 IVPB
     Route: 042
     Dates: start: 20050131, end: 20050201
  2. LEVAQUIN [Suspect]
     Indication: SEROMA
     Dosage: 500 MG Q 24 IVPB
     Route: 042
     Dates: start: 20050131, end: 20050201

REACTIONS (1)
  - PRURITUS GENERALISED [None]
